FAERS Safety Report 20222590 (Version 2)
Quarter: 2022Q1

REPORT INFORMATION
  Report Type: Spontaneous
  Country: AR (occurrence: AR)
  Receive Date: 20211223
  Receipt Date: 20220321
  Transmission Date: 20220423
  Serious: Yes (Other)
  Sender: FDA-Public Use
  Company Number: AR-NOVARTISPH-NVSC2021AR199169

PATIENT
  Sex: Male

DRUGS (2)
  1. ZOLGENSMA [Suspect]
     Active Substance: ONASEMNOGENE ABEPARVOVEC-XIOI
     Indication: Spinal muscular atrophy
     Dosage: UNK, ONCE/SINGLE
     Route: 042
     Dates: start: 20210820
  2. MEPREDNISONE [Concomitant]
     Active Substance: MEPREDNISONE
     Indication: Product used for unknown indication
     Dosage: 1 MG/KG, QD
     Route: 048

REACTIONS (6)
  - Pericardial effusion [Unknown]
  - Ventricular hypertrophy [Unknown]
  - Troponin T increased [Unknown]
  - Pyrexia [Recovered/Resolved]
  - Transaminases increased [Recovered/Resolved]
  - Platelet count decreased [Recovered/Resolved]
